FAERS Safety Report 20527343 (Version 3)
Quarter: 2022Q4

REPORT INFORMATION
  Report Type: Spontaneous
  Country: US (occurrence: US)
  Receive Date: 20220228
  Receipt Date: 20221012
  Transmission Date: 20230113
  Serious: No
  Sender: FDA-Public Use
  Company Number: US-BRISTOL-MYERS SQUIBB COMPANY-BMS-2022-029265

PATIENT
  Age: 53 Year
  Sex: Female

DRUGS (2)
  1. ORENCIA [Suspect]
     Active Substance: ABATACEPT
     Indication: Rheumatoid arthritis
     Dosage: 125 MILLIGRAM, QWK
     Route: 058
     Dates: start: 20220105
  2. ORENCIA [Suspect]
     Active Substance: ABATACEPT
     Route: 058
     Dates: start: 202201

REACTIONS (6)
  - Pain [Unknown]
  - Condition aggravated [Unknown]
  - Product supply issue [Unknown]
  - Joint swelling [Unknown]
  - Arthralgia [Unknown]
  - Pain [Unknown]
